FAERS Safety Report 10108910 (Version 3)
Quarter: 2015Q2

REPORT INFORMATION
  Report Type: Spontaneous
  Country: US (occurrence: US)
  Receive Date: 20140425
  Receipt Date: 20150424
  Transmission Date: 20150821
  Serious: Yes (Hospitalization)
  Sender: FDA-Public Use
  Company Number: US-BAYER-2014-058760

PATIENT
  Age: 53 Year
  Sex: Female
  Weight: 68.27 kg

DRUGS (4)
  1. IBUPROFEN. [Concomitant]
     Active Substance: IBUPROFEN
     Indication: ARTHRALGIA
     Dosage: UNK, PRN
     Dates: start: 20050126
  2. YASMIN [Suspect]
     Active Substance: DROSPIRENONE\ETHINYL ESTRADIOL
     Indication: PREMENSTRUAL SYNDROME
     Dosage: UNK
     Dates: start: 200311, end: 200410
  3. YAZ [Suspect]
     Active Substance: DROSPIRENONE\ETHINYL ESTRADIOL
     Indication: PREMENSTRUAL SYNDROME
     Dosage: UNK
     Dates: start: 200311, end: 200410
  4. SEROQUEL [Concomitant]
     Active Substance: QUETIAPINE FUMARATE
     Dosage: 12.5 MG, HS
     Route: 048
     Dates: start: 20050126

REACTIONS (8)
  - Anxiety [None]
  - Anhedonia [None]
  - Injury [None]
  - Pain [None]
  - Quality of life decreased [None]
  - Emotional distress [None]
  - Deep vein thrombosis [None]
  - Product use issue [None]

NARRATIVE: CASE EVENT DATE: 20050124
